FAERS Safety Report 6494003-3 (Version None)
Quarter: 2009Q4

REPORT INFORMATION
  Report Type: 
  Country: None (occurrence: None)
  Receive Date: 20091214
  Receipt Date: 20090120
  Transmission Date: 20100525
  Serious: No
  Sender: FDA-Public Use
  Company Number: US-BRISTOL-MYERS SQUIBB COMPANY-14434724

PATIENT
  Age: 66 Year
  Sex: Male
  Weight: 103 kg

DRUGS (8)
  1. ABILIFY [Suspect]
     Indication: DEPRESSION
     Dosage: TAKING FROM 4-5WEEKS
  2. PRISTIQ [Concomitant]
  3. CLORAZEPATE DIPOTASSIUM [Concomitant]
  4. NIASPAN [Concomitant]
  5. ACTOS [Concomitant]
  6. AMARYL [Concomitant]
  7. ZETIA [Concomitant]
  8. TRICOR [Concomitant]

REACTIONS (5)
  - CONSTIPATION [None]
  - FATIGUE [None]
  - INSOMNIA [None]
  - SOMNOLENCE [None]
  - VISION BLURRED [None]
